FAERS Safety Report 5911003-X (Version None)
Quarter: 2008Q4

REPORT INFORMATION
  Report Type: 
  Country: None (occurrence: None)
  Receive Date: 20081007
  Receipt Date: 20080929
  Transmission Date: 20090506
  Serious: Yes (Other)
  Sender: FDA-Public Use
  Company Number: US-JNJFOC-20081000202

PATIENT
  Sex: Female
  Weight: 52.62 kg

DRUGS (7)
  1. TYLENOL (CAPLET) [Suspect]
     Route: 048
  2. TYLENOL (CAPLET) [Suspect]
     Indication: BACK PAIN
     Route: 048
  3. MULTI-VITAMIN [Concomitant]
  4. ASCORBIC ACID [Concomitant]
  5. VITAMIN E [Concomitant]
  6. CALTRATE [Concomitant]
     Indication: MINERAL SUPPLEMENTATION
  7. EVISTA [Concomitant]
     Indication: BONE DISORDER

REACTIONS (2)
  - DYSPNOEA [None]
  - FOREIGN BODY TRAUMA [None]
